FAERS Safety Report 4434023-3 (Version None)
Quarter: 2004Q3

REPORT INFORMATION
  Report Type: 
  Country: None (occurrence: None)
  Receive Date: 20040825
  Receipt Date: 20040806
  Transmission Date: 20050211
  Serious: Yes (Death)
  Sender: FDA-Public Use
  Company Number: USA040874946

PATIENT
  Sex: Male

DRUGS (2)
  1. ZYPREXA [Suspect]
  2. 'TRANQUILIZER' [Concomitant]

REACTIONS (1)
  - OVERDOSE [None]
